FAERS Safety Report 13652654 (Version 1)
Quarter: 2017Q2

REPORT INFORMATION
  Report Type: Spontaneous
  Country: US (occurrence: US)
  Receive Date: 20170614
  Receipt Date: 20170614
  Transmission Date: 20170830
  Serious: No
  Sender: FDA-Public Use
  Company Number: US-ROCHE-1359662

PATIENT
  Sex: Male

DRUGS (5)
  1. XELODA [Suspect]
     Active Substance: CAPECITABINE
     Route: 048
     Dates: start: 20141013
  2. XELODA [Suspect]
     Active Substance: CAPECITABINE
     Dosage: 1500 MG IN MORNING AND 1000 MG IN EVENING
     Route: 048
     Dates: start: 20141017
  3. XELODA [Suspect]
     Active Substance: CAPECITABINE
     Indication: PRODUCT USED FOR UNKNOWN INDICATION
     Dosage: 3 TABLETS TWICE DAILY FOR 7 DAYS ON AND 7 DAYS OFF
     Route: 048
     Dates: start: 20131106
  4. XELODA [Suspect]
     Active Substance: CAPECITABINE
     Route: 048
     Dates: start: 20131107
  5. XELODA [Suspect]
     Active Substance: CAPECITABINE
     Dosage: 500 MG, 3 TABS BID, 7 DAYS ON, 7 OFF
     Route: 048
     Dates: start: 20140715, end: 201407

REACTIONS (6)
  - Rash [Unknown]
  - Neuropathy peripheral [Unknown]
  - Peripheral swelling [Recovered/Resolved]
  - Palmar-plantar erythrodysaesthesia syndrome [Not Recovered/Not Resolved]
  - Pain in extremity [Not Recovered/Not Resolved]
  - Pain in extremity [Recovered/Resolved]
